FAERS Safety Report 23791926 (Version 1)
Quarter: 2024Q2

REPORT INFORMATION
  Report Type: Spontaneous
  Country: US (occurrence: US)
  Receive Date: 20240429
  Receipt Date: 20240429
  Transmission Date: 20240715
  Serious: Yes (Other)
  Sender: FDA-Public Use
  Company Number: US-SA-SAC20240423000347

PATIENT
  Age: 36 Year
  Sex: Male

DRUGS (2)
  1. REZUROCK [Suspect]
     Active Substance: BELUMOSUDIL
     Indication: Graft versus host disease
     Dosage: 200 MG, BID
     Route: 048
     Dates: start: 20210830, end: 20240328
  2. JAKAFI [Concomitant]
     Active Substance: RUXOLITINIB
     Dosage: UNK

REACTIONS (2)
  - Hip arthroplasty [Unknown]
  - Inappropriate schedule of product administration [Unknown]

NARRATIVE: CASE EVENT DATE: 20210830
